FAERS Safety Report 20389009 (Version 2)
Quarter: 2022Q1

REPORT INFORMATION
  Report Type: Report from Study
  Country: CA (occurrence: CA)
  Receive Date: 20220128
  Receipt Date: 20220324
  Transmission Date: 20220424
  Serious: Yes (Other)
  Sender: FDA-Public Use
  Company Number: CA-ABBVIE-22K-028-4252684-00

PATIENT
  Sex: Male

DRUGS (1)
  1. RINVOQ [Suspect]
     Active Substance: UPADACITINIB
     Indication: Rheumatoid arthritis
     Route: 058
     Dates: start: 20210518

REACTIONS (2)
  - Foot operation [Unknown]
  - Rheumatoid arthritis [Unknown]
